FAERS Safety Report 4540178-2 (Version None)
Quarter: 2004Q4

REPORT INFORMATION
  Report Type: 
  Country: None (occurrence: None)
  Receive Date: 20041222
  Receipt Date: 20041209
  Transmission Date: 20050328
  Serious: Yes (Hospitalization, Other)
  Sender: FDA-Public Use
  Company Number: FR_040904885

PATIENT
  Age: 38 Year
  Sex: Male

DRUGS (3)
  1. ZYPREXA [Suspect]
     Indication: PSYCHOTIC DISORDER
     Dosage: 10 MG/3 DAY
     Dates: start: 20000101, end: 20040101
  2. HALDOL [Concomitant]
  3. ZOLOFT [Concomitant]

REACTIONS (3)
  - NEUTROPENIA [None]
  - PRESCRIBED OVERDOSE [None]
  - SUBCUTANEOUS ABSCESS [None]
